FAERS Safety Report 9855840 (Version 1)
Quarter: 2014Q1

REPORT INFORMATION
  Report Type: Spontaneous
  Country: US (occurrence: US)
  Receive Date: 20140130
  Receipt Date: 20140130
  Transmission Date: 20141002
  Serious: Yes (Other)
  Sender: FDA-Public Use
  Company Number: PHEH2014US001846

PATIENT
  Sex: Male

DRUGS (2)
  1. FOCALIN XR [Suspect]
     Dosage: 30 MG, BID
  2. PRISTIQ [Concomitant]
     Dosage: UNK UKN, UNK

REACTIONS (7)
  - Toxicity to various agents [Unknown]
  - Angiopathy [Unknown]
  - Feeling hot [Unknown]
  - Drug hypersensitivity [Unknown]
  - Skin discolouration [Unknown]
  - Erythema [Unknown]
  - Pruritus [Unknown]
